FAERS Safety Report 4281101-8 (Version None)
Quarter: 2004Q1

REPORT INFORMATION
  Report Type: 
  Country: None (occurrence: None)
  Receive Date: 20040112
  Receipt Date: 20030914
  Transmission Date: 20041129
  Serious: Yes (Other)
  Sender: FDA-Public Use
  Company Number: 346695

PATIENT
  Age: 35 Year
  Sex: Male
  Weight: 70.3 kg

DRUGS (3)
  1. FUZEON [Suspect]
     Indication: HIV INFECTION
     Dosage: SUBCUTANEOUS
     Route: 058
     Dates: start: 20030501, end: 20030912
  2. TESTOSTERONE [Concomitant]
  3. RESTORIL [Concomitant]

REACTIONS (8)
  - ASTHMA [None]
  - FEELING HOT [None]
  - ILL-DEFINED DISORDER [None]
  - INJECTION SITE REACTION [None]
  - INSOMNIA [None]
  - MEDICATION ERROR [None]
  - MOVEMENT DISORDER [None]
  - NO ADVERSE DRUG EFFECT [None]
